FAERS Safety Report 4577160-5 (Version None)
Quarter: 2005Q1

REPORT INFORMATION
  Report Type: 
  Country: None (occurrence: None)
  Receive Date: 20050210
  Receipt Date: 20040630
  Transmission Date: 20050727
  Serious: Yes (Hospitalization)
  Sender: FDA-Public Use
  Company Number: PHBS2004JP08602

PATIENT
  Age: 62 Year
  Sex: Female

DRUGS (8)
  1. BASEN [Concomitant]
     Indication: BLOOD GLUCOSE INCREASED
     Dosage: 0.2 MG, TID
     Dates: start: 20030707, end: 20030809
  2. BASEN [Concomitant]
     Dosage: 0.2 MG, TID
     Dates: start: 20040826, end: 20040907
  3. BASEN [Concomitant]
     Dosage: 0.3 MG, TID
     Dates: start: 20040908
  4. PHENYTOIN [Suspect]
     Indication: PROPHYLAXIS
     Dosage: 200 MG/DAY
     Route: 048
     Dates: start: 20030701, end: 20040501
  5. GASTER [Concomitant]
     Dosage: 20 MG
     Dates: start: 20030701
  6. STARSIS #AJ [Suspect]
     Indication: DIABETES MELLITUS
     Dosage: 270 MG/DAY
     Route: 048
     Dates: start: 20000401, end: 20031101
  7. STARSIS #AJ [Suspect]
     Dosage: UNK, UNK
     Route: 048
     Dates: start: 20031101, end: 20040501
  8. STARSIS #AJ [Suspect]
     Dosage: 270 MG/DAY
     Route: 048
     Dates: start: 20040501

REACTIONS (5)
  - DIABETES MELLITUS INADEQUATE CONTROL [None]
  - DRUG INTERACTION [None]
  - HYPOGLYCAEMIA [None]
  - MENINGITIS VIRAL [None]
  - TREMOR [None]
